FAERS Safety Report 23938578 (Version 1)
Quarter: 2024Q2

REPORT INFORMATION
  Report Type: Spontaneous
  Country: US (occurrence: None)
  Receive Date: 20240604
  Receipt Date: 20240604
  Transmission Date: 20240716
  Serious: Yes (Other)
  Sender: FDA-Public Use
  Company Number: None

PATIENT
  Age: 50 Year
  Sex: Female
  Weight: 67.5 kg

DRUGS (9)
  1. PREMIUM HAND SANITIZER WITH ALOE [Suspect]
     Active Substance: ALCOHOL
     Indication: Product used for unknown indication
     Dosage: OTHER QUANTITY : 1 BOTTLE OF SANITIZE;?OTHER ROUTE : AIRBORNE EXPOSURE;?
     Route: 050
     Dates: start: 20240604, end: 20240604
  2. CROMOLYN SODIUM [Concomitant]
     Active Substance: CROMOLYN SODIUM
  3. THROID MEDICATION [Concomitant]
  4. LATANOPROST [Concomitant]
     Active Substance: LATANOPROST
  5. B NAC D C [Concomitant]
  6. MAGNESIUM [Concomitant]
  7. POTASSIUM [Concomitant]
  8. THIANINE [Concomitant]
  9. PEA [Concomitant]

REACTIONS (10)
  - Pruritus [None]
  - Rhinorrhoea [None]
  - Nasal discomfort [None]
  - Oropharyngeal pain [None]
  - Migraine [None]
  - Intraocular pressure increased [None]
  - Chest pain [None]
  - Intracranial pressure increased [None]
  - Tachycardia [None]
  - Hypotension [None]

NARRATIVE: CASE EVENT DATE: 20240604
